FAERS Safety Report 8201884-1 (Version None)
Quarter: 2012Q1

REPORT INFORMATION
  Report Type: 
  Country: None (occurrence: None)
  Receive Date: 20120312
  Receipt Date: 20120302
  Transmission Date: 20120608
  Serious: Yes (Hospitalization)
  Sender: FDA-Public Use
  Company Number: US-BAYER-2011-091230

PATIENT
  Age: 20 Year
  Sex: Female
  Weight: 86 kg

DRUGS (3)
  1. LEVSIN/SL [Concomitant]
     Indication: ABDOMINAL PAIN
     Dosage: 0.125 MG, PRN
  2. DOXYCYCLINE HYCLATE [Concomitant]
     Dosage: 100 MG, QD
  3. YASMIN [Suspect]
     Indication: CONTRACEPTION
     Dosage: UNK
     Route: 048
     Dates: start: 20090812, end: 20091201

REACTIONS (4)
  - CHOLELITHIASIS [None]
  - PAIN [None]
  - CHOLECYSTITIS CHRONIC [None]
  - ABDOMINAL PAIN [None]
